FAERS Safety Report 8349808-0 (Version None)
Quarter: 2012Q1

REPORT INFORMATION
  Report Type: 
  Country: None (occurrence: None)
  Receive Date: 20120329
  Receipt Date: 20110218
  Transmission Date: 20120608
  Serious: Yes (Hospitalization)
  Sender: FDA-Public Use
  Company Number: WAES 1102USA02432

PATIENT

DRUGS (1)
  1. FOSAPREPITANT DIMEGLAMINE [Suspect]
     Dosage: 150 MG,,

REACTIONS (2)
  - DRUG INEFFECTIVE [None]
  - VOMITING [None]
